FAERS Safety Report 10885414 (Version 2)
Quarter: 2015Q1

REPORT INFORMATION
  Report Type: Spontaneous
  Country: JP (occurrence: JP)
  Receive Date: 20150304
  Receipt Date: 20150324
  Transmission Date: 20150721
  Serious: Yes (Other)
  Sender: FDA-Public Use
  Company Number: JP-PFIZER INC-2015074043

PATIENT
  Age: 82 Year
  Sex: Male

DRUGS (2)
  1. ZYVOX [Suspect]
     Active Substance: LINEZOLID
     Indication: STAPHYLOCOCCAL INFECTION
     Dosage: UNK
     Route: 041
  2. ZYVOX [Suspect]
     Active Substance: LINEZOLID
     Indication: STREPTOCOCCAL INFECTION

REACTIONS (2)
  - Hyponatraemia [Recovered/Resolved]
  - Diabetes insipidus [Unknown]
